FAERS Safety Report 5677151-7 (Version None)
Quarter: 2008Q1

REPORT INFORMATION
  Report Type: 
  Country: None (occurrence: None)
  Receive Date: 20080324
  Receipt Date: 20080317
  Transmission Date: 20080703
  Serious: Yes (Hospitalization)
  Sender: FDA-Public Use
  Company Number: A0706726A

PATIENT
  Age: 27 Year
  Sex: Male
  Weight: 70 kg

DRUGS (5)
  1. PARNATE [Suspect]
     Indication: DEPRESSION
     Dosage: 90MGD PER DAY
     Route: 048
     Dates: start: 20030101, end: 20080125
  2. CLOZAPINE [Concomitant]
     Dates: start: 20060101
  3. AMITRIPTYLINE HCL [Concomitant]
     Dates: start: 20070101
  4. ALDACTONE [Concomitant]
     Dates: start: 20070101
  5. AKINETON [Concomitant]
     Dates: start: 20060101, end: 20080215

REACTIONS (2)
  - DEPRESSION [None]
  - OVERDOSE [None]
